FAERS Safety Report 8607209 (Version 3)
Quarter: 2013Q4

REPORT INFORMATION
  Report Type: Spontaneous
  Country: US (occurrence: US)
  Receive Date: 20120611
  Receipt Date: 20131128
  Transmission Date: 20140711
  Serious: Yes (Disabling)
  Sender: FDA-Public Use
  Company Number: US-ASTRAZENECA-2012SE35724

PATIENT
  Age: 35 Year
  Sex: Female

DRUGS (9)
  1. NEXIUM [Suspect]
     Indication: GASTROOESOPHAGEAL REFLUX DISEASE
     Route: 048
     Dates: start: 200903, end: 2010
  2. NEXIUM [Suspect]
     Indication: GASTROOESOPHAGEAL REFLUX DISEASE
     Route: 048
     Dates: start: 20090928
  3. PREVACID [Concomitant]
     Indication: GASTROOESOPHAGEAL REFLUX DISEASE
     Dates: start: 1998, end: 2006
  4. TUMS [Concomitant]
  5. MILK OF MAGNESIA [Concomitant]
  6. PEPTO BISMOL [Concomitant]
  7. ROLAIDS [Concomitant]
  8. MYLANTA [Concomitant]
  9. PRENATAL VITAMINS [Concomitant]
     Dates: start: 2009, end: 2010

REACTIONS (11)
  - Hand deformity [Unknown]
  - Arthralgia [Unknown]
  - Osteoporosis [Unknown]
  - Hand fracture [Unknown]
  - Back pain [Unknown]
  - Hypoaesthesia [Unknown]
  - Pain [Unknown]
  - Arthritis [Unknown]
  - Diabetes mellitus [Unknown]
  - Rheumatoid arthritis [Unknown]
  - Depression [Unknown]
